FAERS Safety Report 8071580-2 (Version None)
Quarter: 2012Q1

REPORT INFORMATION
  Report Type: 
  Country: None (occurrence: None)
  Receive Date: 20120125
  Receipt Date: 20120111
  Transmission Date: 20120608
  Serious: Yes (Other)
  Sender: FDA-Public Use
  Company Number: CA-JNJFOC-20120110422

PATIENT
  Sex: Female

DRUGS (18)
  1. VENTOLIN [Concomitant]
     Route: 055
  2. FERROUS SULFATE TAB [Concomitant]
     Dosage: DOSE REPORTED AS ^300 EVERY MORNING
  3. FLONASE [Concomitant]
     Dosage: DOSE REPORTED AS ^50 NASAL SPRAY QD^
     Route: 055
  4. VOLTAREN [Concomitant]
     Dosage: DOSE REPORTED AS ^GEL BID  PRN^
  5. LEUCOVORIN CALCIUM [Concomitant]
     Route: 048
  6. FLOVENT [Concomitant]
     Dosage: DOSE REPORTED AS ^25 (ILLEGIBLE) BID^
     Route: 055
  7. ALPRAZOLAM [Concomitant]
  8. ACETAMINOPHEN [Concomitant]
     Dosage: DOSE REPORTED AS EVERY 6 HOURS AS NEEDED
  9. OMEPRAZOLE [Concomitant]
     Dosage: DOSEREPORTED AS ^20 QD^
  10. METHOTREXATE [Concomitant]
     Dosage: DOSE REPORTED AS ^2.5 [4BID?]^
  11. COLACE [Concomitant]
     Dosage: DOSE REPORTED AS ^100 BID^
  12. GRAVOL TAB [Concomitant]
     Dosage: DOSE REPORTED AS ^50 (ILLEGIBLE) AS NEEDED^
  13. QUETIAPINE [Concomitant]
  14. EFFEXOR XR [Concomitant]
     Dosage: DOSE REPORTED AS ^150^ EVERY MORNING
  15. LITHIUM CARBONATE [Concomitant]
     Dosage: DDOSE REPORTED AS ^300 BID^
  16. METHOTRIMEPRAZINE [Concomitant]
     Dosage: DOSE REPORTED AS ^25 (ILLEGIBLE) HS^
  17. REMICADE [Suspect]
     Indication: PRODUCT USED FOR UNKNOWN INDICATION
     Route: 042
  18. SYNTHROID [Concomitant]
     Dosage: DOSE REPORTED AS ^112 QD^

REACTIONS (1)
  - PULMONARY MASS [None]
